FAERS Safety Report 9256012 (Version 2)
Quarter: 2013Q2

REPORT INFORMATION
  Report Type: Spontaneous
  Country: DK (occurrence: IT)
  Receive Date: 20130425
  Receipt Date: 20130520
  Transmission Date: 20140414
  Serious: Yes (Life-Threatening)
  Sender: FDA-Public Use
  Company Number: IT-FRI-1000044676

PATIENT
  Age: 49 Year
  Sex: Male

DRUGS (4)
  1. ESCITALOPRAM ORAL SOLUTION [Suspect]
     Indication: PRODUCT USED FOR UNKNOWN INDICATION
     Dosage: OVERDOSE: 15 ML (300 MG)
     Route: 048
     Dates: start: 20130115, end: 20130115
  2. XANAX [Suspect]
     Indication: PRODUCT USED FOR UNKNOWN INDICATION
     Dosage: OVERDOSE: 20 TABLETS (60 MG)
     Route: 048
     Dates: start: 20130115, end: 20130115
  3. METHADONE HYDROCHLORIDE [Suspect]
     Indication: PRODUCT USED FOR UNKNOWN INDICATION
     Dosage: 90 MG
     Route: 048
     Dates: start: 20130115, end: 20130115
  4. DEPAKIN [Suspect]
     Indication: PRODUCT USED FOR UNKNOWN INDICATION
     Dosage: OVERDOSE: 6 SACHET
     Dates: start: 20130115, end: 20130115

REACTIONS (3)
  - Sopor [Recovering/Resolving]
  - Drug abuse [Not Recovered/Not Resolved]
  - Overdose [Recovering/Resolving]
